FAERS Safety Report 7934209-7 (Version None)
Quarter: 2011Q4

REPORT INFORMATION
  Report Type: 
  Country: None (occurrence: None)
  Receive Date: 20111122
  Receipt Date: 20111121
  Transmission Date: 20120403
  Serious: Yes (Other)
  Sender: FDA-Public Use
  Company Number: US-PFIZER INC-2011284941

PATIENT
  Sex: Female
  Weight: 95.2 kg

DRUGS (10)
  1. LISINOPRIL [Concomitant]
     Indication: HYPERTENSION
     Dosage: 10 MG, DAILY
  2. CELEXA [Concomitant]
     Dosage: 40 MG, DAILY
  3. CHANTIX [Suspect]
     Indication: SMOKING CESSATION THERAPY
     Dosage: 1 MG, 2X/DAY
     Route: 048
     Dates: start: 20111030
  4. LEVOXYL [Concomitant]
     Dosage: 200 MG, DAILY
  5. CHLOROQUINE [Concomitant]
     Dosage: 60 MG, DAILY
  6. PERCOCET [Concomitant]
     Dosage: 10/325 MG, EVERY SIX HOURS
  7. OXYCODONE [Concomitant]
     Dosage: 40 MG, 2X/DAY
  8. HYDROCHLOROTHIAZIDE [Concomitant]
     Dosage: 25 MG, DAILY
  9. GABAPENTIN [Concomitant]
     Dosage: 600 MG, 2X/DAY
  10. SOMA [Concomitant]
     Dosage: 350 MG, 2X/DAY

REACTIONS (5)
  - RESTLESSNESS [None]
  - DEPRESSION [None]
  - DISTURBANCE IN ATTENTION [None]
  - AGITATION [None]
  - DYSGEUSIA [None]
